FAERS Safety Report 5720830-3 (Version None)
Quarter: 2008Q2

REPORT INFORMATION
  Report Type: 
  Country: None (occurrence: None)
  Receive Date: 20080429
  Receipt Date: 20080421
  Transmission Date: 20081010
  Serious: Yes (Other)
  Sender: FDA-Public Use
  Company Number: PHHY2008JP06482

PATIENT
  Age: 54 Year

DRUGS (4)
  1. STEROIDS NOS [Concomitant]
     Indication: BONE MARROW TRANSPLANT
     Dates: start: 20080401
  2. SANDIMMUNE [Suspect]
     Indication: BONE MARROW TRANSPLANT
     Dosage: UNK, UNK
     Route: 041
     Dates: start: 20080401
  3. SANDIMMUNE [Suspect]
     Dosage: 50 MG
     Route: 041
  4. BUSULFAN [Concomitant]

REACTIONS (5)
  - BLOOD BILIRUBIN INCREASED [None]
  - FLUID RETENTION [None]
  - LIVER DISORDER [None]
  - VENOOCCLUSIVE DISEASE [None]
  - WEIGHT INCREASED [None]
